FAERS Safety Report 11215800 (Version 2)
Quarter: 2015Q3

REPORT INFORMATION
  Report Type: Spontaneous
  Country: ES (occurrence: None)
  Receive Date: 20150622
  Receipt Date: 20150716
  Transmission Date: 20151125
  Serious: Yes (Hospitalization, Other)
  Sender: FDA-Public Use
  Company Number: INT_00814_2015

PATIENT
  Age: 61 Year
  Weight: 55 kg

DRUGS (6)
  1. PEMETREXED [Suspect]
     Active Substance: PEMETREXED
     Indication: NON-SMALL CELL LUNG CANCER
     Dosage: 500 MG/M2, 1X/21 DAYS, 2 CYCLES, INFUSED OVER APPROXIMATELY 10 MINS)
     Dates: start: 20110720
  2. VITAMIN B12 [Concomitant]
     Active Substance: CYANOCOBALAMIN
  3. FOLIC ACID. [Concomitant]
     Active Substance: FOLIC ACID
  4. DEXAMETHASONE. [Concomitant]
     Active Substance: DEXAMETHASONE
  5. CISPLATIN. [Suspect]
     Active Substance: CISPLATIN
     Indication: NON-SMALL CELL LUNG CANCER
     Dosage: 75 MG/M2, 1X/21 DAYS, 2 CYCLES
     Route: 042
     Dates: start: 20110720
  6. RADIOTHERAPHY [Suspect]
     Active Substance: RADIATION THERAPY
     Indication: NON-SMALL CELL LUNG CANCER
     Dosage: 2  GY/FRACTION, 5DAYS/WEEK, 66 GY TOTAL)
     Dates: start: 20110831

REACTIONS (1)
  - Oesophagitis [None]

NARRATIVE: CASE EVENT DATE: 20111004
